FAERS Safety Report 7747195 (Version 3)
Quarter: 2015Q4

REPORT INFORMATION
  Report Type: Spontaneous
  Country: US (occurrence: US)
  Receive Date: 20110104
  Receipt Date: 20151130
  Transmission Date: 20160305
  Serious: Yes (Other)
  Sender: FDA-Public Use
  Company Number: US-BAYER-2011-000122

PATIENT
  Age: 35 Year
  Sex: Female
  Weight: 78 kg

DRUGS (9)
  1. PEPTO-BISMOL [Concomitant]
     Active Substance: BISMUTH SUBSALICYLATE\CALCIUM CARBONATE
     Indication: ABDOMINAL PAIN UPPER
  2. COMPAZINE [Concomitant]
     Active Substance: PROCHLORPERAZINE MALEATE
  3. MUCINEX [Concomitant]
     Active Substance: GUAIFENESIN
  4. FLONASE [Concomitant]
     Active Substance: FLUTICASONE PROPIONATE
  5. FLUTICASONE [Concomitant]
     Active Substance: FLUTICASONE\FLUTICASONE PROPIONATE
  6. YASMIN [Suspect]
     Active Substance: DROSPIRENONE\ETHINYL ESTRADIOL
     Indication: CONTRACEPTION
     Dosage: UNK
  7. YASMIN [Suspect]
     Active Substance: DROSPIRENONE\ETHINYL ESTRADIOL
     Indication: PREMENSTRUAL SYNDROME
  8. ADVIL [Concomitant]
     Active Substance: IBUPROFEN
     Indication: ANALGESIC THERAPY
  9. BENADRYL [Concomitant]
     Active Substance: DIPHENHYDRAMINE HYDROCHLORIDE
     Indication: MULTIPLE ALLERGIES

REACTIONS (11)
  - Nausea [None]
  - Dyspnoea [None]
  - Pain [None]
  - Diarrhoea [None]
  - Renal vascular thrombosis [None]
  - Vomiting [None]
  - Thrombotic thrombocytopenic purpura [None]
  - Acute kidney injury [None]
  - Psychological trauma [Unknown]
  - Renal haemorrhage [Unknown]
  - Emotional disorder [Unknown]

NARRATIVE: CASE EVENT DATE: 200712
